FAERS Safety Report 19394489 (Version 1)
Quarter: 2021Q2

REPORT INFORMATION
  Report Type: Report from Study
  Country: US (occurrence: US)
  Receive Date: 20210609
  Receipt Date: 20210609
  Transmission Date: 20210717
  Serious: Yes (Hospitalization, Other)
  Sender: FDA-Public Use
  Company Number: US-TAKEDA-2021TUS012652

PATIENT
  Age: 43 Year
  Sex: Female

DRUGS (8)
  1. TEDUGLUTIDE [Suspect]
     Active Substance: TEDUGLUTIDE
     Indication: SHORT-BOWEL SYNDROME
     Dosage: 6.085 MILLIGRAM, QD
     Route: 058
     Dates: start: 20210106
  2. TEDUGLUTIDE [Suspect]
     Active Substance: TEDUGLUTIDE
     Dosage: 6.085 MILLIGRAM, QD
     Route: 058
     Dates: start: 20210107
  3. TEDUGLUTIDE [Suspect]
     Active Substance: TEDUGLUTIDE
     Dosage: 6.085 MILLIGRAM, QD
     Route: 058
     Dates: start: 20210107
  4. TEDUGLUTIDE [Suspect]
     Active Substance: TEDUGLUTIDE
     Indication: SHORT-BOWEL SYNDROME
     Dosage: 6.085 MILLIGRAM, QD
     Route: 058
     Dates: start: 20210106
  5. TEDUGLUTIDE [Suspect]
     Active Substance: TEDUGLUTIDE
     Indication: SHORT-BOWEL SYNDROME
     Dosage: 6.085 MILLIGRAM, QD
     Route: 058
     Dates: start: 20210106
  6. TEDUGLUTIDE [Suspect]
     Active Substance: TEDUGLUTIDE
     Dosage: 6.085 MILLIGRAM, QD
     Route: 058
     Dates: start: 20210107
  7. TEDUGLUTIDE [Suspect]
     Active Substance: TEDUGLUTIDE
     Dosage: 6.085 MILLIGRAM, QD
     Route: 058
     Dates: start: 20210107
  8. TEDUGLUTIDE [Suspect]
     Active Substance: TEDUGLUTIDE
     Indication: SHORT-BOWEL SYNDROME
     Dosage: 6.085 MILLIGRAM, QD
     Route: 058
     Dates: start: 20210106

REACTIONS (4)
  - Fluid retention [Unknown]
  - Intestinal mucosal hypertrophy [Unknown]
  - Septic shock [Unknown]
  - Cushingoid [Unknown]

NARRATIVE: CASE EVENT DATE: 202105
